FAERS Safety Report 5012116-X (Version None)
Quarter: 2006Q2

REPORT INFORMATION
  Report Type: 
  Country: None (occurrence: None)
  Receive Date: 20060524
  Receipt Date: 20060515
  Transmission Date: 20061013
  Serious: Yes (Hospitalization, Other)
  Sender: FDA-Public Use
  Company Number: 2006064704

PATIENT
  Age: 24 Year
  Sex: Male
  Weight: 79.3795 kg

DRUGS (2)
  1. CELEBREX [Suspect]
     Indication: WRIST FRACTURE
     Dosage: 200 MG
     Dates: start: 20020101, end: 20030101
  2. CELEBREX [Suspect]
     Indication: WRIST FRACTURE
     Dosage: 200 MG
     Dates: start: 20040101, end: 20050101

REACTIONS (3)
  - CARDIAC DISORDER [None]
  - HEART RATE ABNORMAL [None]
  - LOSS OF CONSCIOUSNESS [None]
